FAERS Safety Report 18463577 (Version 3)
Quarter: 2021Q3

REPORT INFORMATION
  Report Type: Spontaneous
  Country: US (occurrence: US)
  Receive Date: 20201104
  Receipt Date: 20210818
  Transmission Date: 20211014
  Serious: Yes (Other)
  Sender: FDA-Public Use
  Company Number: US-PURDUE-USA-2020-0173624

PATIENT
  Sex: Male

DRUGS (2)
  1. OXYCODONE HCL TABLETS (91?490) [Suspect]
     Active Substance: OXYCODONE HYDROCHLORIDE
     Indication: PRODUCT USED FOR UNKNOWN INDICATION
     Dosage: UNKNOWN
     Route: 048
  2. OXYCONTIN [Suspect]
     Active Substance: OXYCODONE HYDROCHLORIDE
     Indication: BACK PAIN
     Dosage: UNKNOWN
     Route: 048
     Dates: start: 2006

REACTIONS (8)
  - Drug dependence [Unknown]
  - Chronic kidney disease [Unknown]
  - Irritability [Unknown]
  - Vomiting [Unknown]
  - Nausea [Unknown]
  - Drug withdrawal syndrome [Unknown]
  - Anger [Unknown]
  - Constipation [Unknown]
